FAERS Safety Report 19750907 (Version 1)
Quarter: 2021Q3

REPORT INFORMATION
  Report Type: Spontaneous
  Country: FR (occurrence: FR)
  Receive Date: 20210826
  Receipt Date: 20210826
  Transmission Date: 20211014
  Serious: Yes (Other)
  Sender: FDA-Public Use
  Company Number: FR-PFIZER INC-202101053126

PATIENT
  Age: 58 Year
  Sex: Male
  Weight: 72 kg

DRUGS (5)
  1. PROPOFOL LIPURO [Suspect]
     Active Substance: PROPOFOL
     Indication: GENERAL ANAESTHESIA
     Dosage: 100 MG, SINGLE
     Route: 041
     Dates: start: 20210211, end: 20210211
  2. TRACRIUM [Suspect]
     Active Substance: ATRACURIUM BESYLATE
     Indication: GENERAL ANAESTHESIA
     Dosage: 95 MG, SINGLE
     Route: 041
     Dates: start: 20210211, end: 20210211
  3. DALACINE [Suspect]
     Active Substance: CLINDAMYCIN
     Indication: PROPHYLAXIS
     Dosage: 900 MG, SINGLE
     Route: 041
     Dates: start: 20210211, end: 20210211
  4. GENTAMICINE PANPHARMA [Suspect]
     Active Substance: GENTAMICIN
     Indication: PROPHYLAXIS
     Dosage: 350 MG, SINGLE
     Route: 041
     Dates: start: 20210211, end: 20210211
  5. ETOMIDATE. [Suspect]
     Active Substance: ETOMIDATE
     Indication: GENERAL ANAESTHESIA
     Dosage: 20 MG, SINGLE
     Route: 041
     Dates: start: 20210211, end: 20210211

REACTIONS (1)
  - Toxic skin eruption [Recovered/Resolved]

NARRATIVE: CASE EVENT DATE: 20210212
